FAERS Safety Report 12427718 (Version 1)
Quarter: 2016Q2

REPORT INFORMATION
  Report Type: Spontaneous
  Country: US (occurrence: None)
  Receive Date: 20160601
  Receipt Date: 20160601
  Transmission Date: 20160815
  Serious: No
  Sender: FDA-Public Use
  Company Number: None

PATIENT
  Age: 52 Year
  Sex: Female
  Weight: 62.6 kg

DRUGS (3)
  1. TIROSINT [Concomitant]
     Active Substance: LEVOTHYROXINE SODIUM
  2. NICORETTE [Suspect]
     Active Substance: NICOTINE
     Indication: SMOKING CESSATION THERAPY
     Route: 048
     Dates: start: 20160201, end: 20160530
  3. VITAMIN D3 [Concomitant]
     Active Substance: CHOLECALCIFEROL

REACTIONS (2)
  - Rash [None]
  - Rash pruritic [None]

NARRATIVE: CASE EVENT DATE: 20160201
